FAERS Safety Report 11861079 (Version 9)
Quarter: 2017Q1

REPORT INFORMATION
  Report Type: Report from Study
  Country: None (occurrence: TR)
  Receive Date: 20151222
  Receipt Date: 20170109
  Transmission Date: 20170428
  Serious: Yes (Death, Hospitalization)
  Sender: FDA-Public Use
  Company Number: TR-ABBVIE-15P-161-1523172-00

PATIENT
  Age: 40 Year
  Sex: Male
  Weight: 90 kg

DRUGS (7)
  1. DUODOPA [Suspect]
     Active Substance: CARBIDOPA\LEVODOPA
     Indication: PARKINSON^S DISEASE
     Dosage: MORNING DOSE: 6.7 ML, CONTINUOUS DOSE: 4.3 ML, EXTRA DOSE: 1.5 ML
     Route: 050
     Dates: start: 20150428
  2. RIVOTRIL [Concomitant]
     Active Substance: CLONAZEPAM
     Indication: PARKINSON^S DISEASE
     Route: 048
     Dates: start: 2013, end: 20161117
  3. MADOPAR [Concomitant]
     Active Substance: BENSERAZIDE HYDROCHLORIDE\LEVODOPA
     Indication: PRODUCT USED FOR UNKNOWN INDICATION
     Dates: end: 201609
  4. DUODOPA [Suspect]
     Active Substance: CARBIDOPA\LEVODOPA
     Dosage: MORNING DOSE: 6.7 ML, CONTINUOUS DOSE: 4.2 ML, EXTRA DOSE: 1.5 ML
     Route: 050
  5. CYMBALTA [Concomitant]
     Active Substance: DULOXETINE HYDROCHLORIDE
     Indication: DEPRESSION
     Route: 048
     Dates: start: 2014, end: 20161117
  6. MADOPAR HBS [Concomitant]
     Active Substance: BENSERAZIDE HYDROCHLORIDE\LEVODOPA
     Indication: PARKINSON^S DISEASE
     Dosage: 1X2
     Route: 048
     Dates: start: 2003, end: 20161117
  7. DANTRIUM [Concomitant]
     Active Substance: DANTROLENE SODIUM
     Indication: MUSCULOSKELETAL STIFFNESS
     Route: 048
     Dates: start: 20160807

REACTIONS (11)
  - Bladder cancer [Fatal]
  - General physical health deterioration [Recovering/Resolving]
  - Haematuria [Fatal]
  - Cystitis [Recovered/Resolved]
  - Lung infection [Not Recovered/Not Resolved]
  - Sepsis [Fatal]
  - Yellow skin [Recovered/Resolved]
  - Benign prostatic hyperplasia [Fatal]
  - Urethral stenosis [Fatal]
  - Lung infection [Recovered/Resolved]
  - General physical health deterioration [Not Recovered/Not Resolved]

NARRATIVE: CASE EVENT DATE: 20151126
